FAERS Safety Report 12071474 (Version 2)
Quarter: 2019Q1

REPORT INFORMATION
  Report Type: Spontaneous
  Country: SE (occurrence: SE)
  Receive Date: 20160211
  Receipt Date: 20190217
  Transmission Date: 20190417
  Serious: Yes (Hospitalization, Other)
  Sender: FDA-Public Use
  Company Number: SE-JNJFOC-20160123861

PATIENT
  Age: 90 Year
  Sex: Female

DRUGS (3)
  1. IPREN [Suspect]
     Active Substance: IBUPROFEN
     Route: 048
  2. ENALAPRIL [Concomitant]
     Active Substance: ENALAPRIL
     Indication: HYPERTENSION
     Route: 048
  3. IPREN [Suspect]
     Active Substance: IBUPROFEN
     Indication: ERYSIPELAS
     Dosage: TREATMENT WAS DISCONTINUED.
     Route: 048
     Dates: start: 20160119

REACTIONS (2)
  - Thrombosis [Unknown]
  - Product administration error [Unknown]

NARRATIVE: CASE EVENT DATE: 20160123
